FAERS Safety Report 7248032-2 (Version None)
Quarter: 2011Q1

REPORT INFORMATION
  Report Type: 
  Country: None (occurrence: None)
  Receive Date: 20110127
  Receipt Date: 20110124
  Transmission Date: 20110831
  Serious: Yes (Hospitalization, Other)
  Sender: FDA-Public Use
  Company Number: SE-PFIZER INC-2011016171

PATIENT
  Age: 82 Year
  Sex: Female

DRUGS (13)
  1. HEMINEVRIN [Concomitant]
     Dosage: 300 MG, UNK
  2. OMEPRAZOLE [Concomitant]
  3. DUPHALAC [Concomitant]
     Dosage: 670 MG/ML, UNK
     Route: 048
  4. DICLOFENAC [Suspect]
     Indication: PAIN IN EXTREMITY
     Dosage: 75 MG/24H, UNK
     Route: 048
     Dates: start: 20100727, end: 20101002
  5. CIPRALEX [Suspect]
     Indication: DEPRESSION
     Dosage: 10 MG/24H, UNK
     Route: 048
  6. METOPROLOL [Concomitant]
  7. VAGIFEM [Concomitant]
     Dosage: 25 UG, UNK
  8. NITROMEX [Concomitant]
     Dosage: 0.25 MG, UNK
     Route: 060
  9. FOLACIN [Concomitant]
     Dosage: 5 MG, UNK
  10. BEHEPAN [Concomitant]
     Dosage: 1 MG, UNK
  11. PREDNISOLONE [Suspect]
     Dosage: 2.5 MG/24H, UNK
     Route: 048
  12. ACETAMINOPHEN [Concomitant]
     Dosage: 500 MG, UNK
  13. KALCIPOS-D [Concomitant]
     Dosage: 500 MG/400IU

REACTIONS (3)
  - GASTRIC ULCER [None]
  - HAEMOGLOBIN DECREASED [None]
  - HAEMORRHOIDS [None]
